FAERS Safety Report 4354289-8 (Version None)
Quarter: 2004Q2

REPORT INFORMATION
  Report Type: 
  Country: None (occurrence: None)
  Receive Date: 20040503
  Receipt Date: 20040415
  Transmission Date: 20050107
  Serious: Yes (Hospitalization, Other)
  Sender: FDA-Public Use
  Company Number: 04-132-0768

PATIENT
  Age: 68 Year
  Sex: Male
  Weight: 95 kg

DRUGS (3)
  1. DAUNORUBICIN HCL [Suspect]
     Indication: ACUTE MYELOID LEUKAEMIA
     Dosage: 45MG/M2 IV DAYS 1,3
     Route: 042
     Dates: start: 20040224
  2. REFER TO ATTACHMENT (ELI LILLY # 0403101866). [Suspect]
  3. REFER TO ATTACHMENT (ELI LILLY # 0403101866). [Concomitant]

REACTIONS (5)
  - ABDOMINAL PAIN [None]
  - ANOREXIA [None]
  - CAECITIS [None]
  - DIARRHOEA [None]
  - FEBRILE NEUTROPENIA [None]
